FAERS Safety Report 18666815 (Version 1)
Quarter: 2020Q4

REPORT INFORMATION
  Report Type: Spontaneous
  Country: US (occurrence: US)
  Receive Date: 20201227
  Receipt Date: 20201227
  Transmission Date: 20210114
  Serious: Yes (Other)
  Sender: FDA-Public Use
  Company Number: US-LUPIN PHARMACEUTICALS INC.-2020-02862

PATIENT
  Age: 71 Year
  Sex: Female
  Weight: 56.24 kg

DRUGS (5)
  1. DAILY VITAMINS [Concomitant]
     Active Substance: VITAMINS
     Indication: PRODUCT USED FOR UNKNOWN INDICATION
     Dosage: UNK
     Route: 065
  2. RIFAMPIN CAPSULES USP, 300 MG [Suspect]
     Active Substance: RIFAMPIN
     Indication: PNEUMONIA
     Dosage: 300 MILLIGRAM, QD
     Route: 048
     Dates: start: 20200311
  3. ETHAMBUTOL [Concomitant]
     Active Substance: ETHAMBUTOL HYDROCHLORIDE
     Indication: PRODUCT USED FOR UNKNOWN INDICATION
     Dosage: UNK
     Route: 065
  4. AZITHROMYCIN ANHYDROUS. [Concomitant]
     Active Substance: AZITHROMYCIN ANHYDROUS
     Indication: PRODUCT USED FOR UNKNOWN INDICATION
     Dosage: UNK
     Route: 065
  5. RIFAMPIN CAPSULES USP, 300 MG [Suspect]
     Active Substance: RIFAMPIN
     Indication: MYCOBACTERIAL INFECTION
     Dosage: 300 MILLIGRAM, QD
     Route: 048
     Dates: start: 201912, end: 201912

REACTIONS (7)
  - Papule [Unknown]
  - Hypersensitivity [Unknown]
  - Incorrect dose administered [Unknown]
  - Rash [Unknown]
  - Wrong technique in product usage process [Unknown]
  - Urticaria [Unknown]
  - Blood urine present [Recovered/Resolved]

NARRATIVE: CASE EVENT DATE: 201912
